FAERS Safety Report 6585518-8 (Version None)
Quarter: 2010Q1

REPORT INFORMATION
  Report Type: 
  Country: None (occurrence: None)
  Receive Date: 20100201
  Receipt Date: 20090826
  Transmission Date: 20100710
  Serious: Yes (Life-Threatening)
  Sender: FDA-Public Use
  Company Number: 8051016

PATIENT
  Sex: Male
  Weight: 127.2 kg

DRUGS (2)
  1. KEPPRA [Suspect]
     Indication: PARTIAL SEIZURES
     Dosage: (100 MG BID ORAL), (500 MG BID ORAL)
     Route: 048
     Dates: start: 20090101, end: 20090101
  2. KEPPRA [Suspect]
     Indication: PARTIAL SEIZURES
     Dosage: (100 MG BID ORAL), (500 MG BID ORAL)
     Route: 048
     Dates: start: 20090101

REACTIONS (5)
  - ANGER [None]
  - DEPRESSION [None]
  - DIZZINESS [None]
  - HEADACHE [None]
  - SUICIDE ATTEMPT [None]
